FAERS Safety Report 8223823-X (Version None)
Quarter: 2012Q1

REPORT INFORMATION
  Report Type: 
  Country: None (occurrence: None)
  Receive Date: 20120316
  Receipt Date: 20120309
  Transmission Date: 20120608
  Serious: Yes (Hospitalization)
  Sender: FDA-Public Use
  Company Number: 2012SP003906

PATIENT
  Age: 74 Year
  Sex: Female

DRUGS (11)
  1. TEMODAL [Suspect]
     Indication: GLIOBLASTOMA
     Dosage: PO
     Route: 048
     Dates: start: 20111130, end: 20120110
  2. XANAX [Concomitant]
  3. LEVOTHYROXINE SODIUM [Concomitant]
  4. PROPRANOLOL [Concomitant]
  5. KEPPRA [Concomitant]
  6. MIRTAZAPINE [Concomitant]
  7. LOVENOX [Concomitant]
  8. CALCIUM CARBONATE [Concomitant]
  9. BEVACIZUMAB (BEVACIZUMAB) [Suspect]
     Indication: GLIOBLASTOMA
     Dosage: 10 MG/KG
     Dates: start: 20111130, end: 20120106
  10. TRANSIPEG [Concomitant]
  11. MEDROL [Concomitant]

REACTIONS (2)
  - LUNG DISORDER [None]
  - DYSPNOEA [None]
